FAERS Safety Report 8821530 (Version 1)
Quarter: 2012Q4

REPORT INFORMATION
  Report Type: 
  Country: DE (occurrence: DE)
  Receive Date: 20121002
  Receipt Date: 20121002
  Transmission Date: 20130627
  Serious: Yes (Life-Threatening, Hospitalization)
  Sender: FDA-Public Use
  Company Number: DE-PFIZER INC-2012238622

PATIENT
  Age: 70 Year
  Sex: Female
  Weight: 55 kg

DRUGS (1)
  1. TEMSIROLIMUS [Suspect]
     Indication: RENAL CANCER METASTATIC
     Dosage: 25 mg, UNK
     Route: 041
     Dates: start: 20120417

REACTIONS (2)
  - Circulatory collapse [Recovered/Resolved]
  - Respiratory arrest [Recovered/Resolved]
